FAERS Safety Report 10078648 (Version 3)
Quarter: 2018Q3

REPORT INFORMATION
  Report Type: Report from Study
  Country: US (occurrence: US)
  Receive Date: 20140415
  Receipt Date: 20180810
  Transmission Date: 20181010
  Serious: Yes (Other)
  Sender: FDA-Public Use
  Company Number: US-SA-2014SA046307

PATIENT
  Age: 48 Year
  Sex: Female

DRUGS (2)
  1. AGALSIDASE BETA [Suspect]
     Active Substance: AGALSIDASE BETA
     Dosage: 70 MG,QOW
     Route: 041
     Dates: start: 20090910, end: 201403
  2. AGALSIDASE BETA [Suspect]
     Active Substance: AGALSIDASE BETA
     Dosage: 70 UNK
     Route: 041
     Dates: start: 20140210

REACTIONS (8)
  - Craniocerebral injury [Recovering/Resolving]
  - Pharyngitis streptococcal [Not Recovered/Not Resolved]
  - Pelvic fracture [Recovering/Resolving]
  - Breast cancer [Unknown]
  - Pain [Not Recovered/Not Resolved]
  - Hypersensitivity [Unknown]
  - Spinal fracture [Recovering/Resolving]
  - Pyrexia [Not Recovered/Not Resolved]

NARRATIVE: CASE EVENT DATE: 20150623
